FAERS Safety Report 9390733 (Version 1)
Quarter: 2013Q3

REPORT INFORMATION
  Report Type: Spontaneous
  Country: UA (occurrence: UA)
  Receive Date: 20130709
  Receipt Date: 20130709
  Transmission Date: 20140515
  Serious: Yes (Life-Threatening, Other)
  Sender: FDA-Public Use
  Company Number: UA-009507513-1307UKR003194

PATIENT
  Sex: 0

DRUGS (1)
  1. DIPROSPAN [Suspect]
     Dosage: ROUTE PARAVERTEBRAL

REACTIONS (2)
  - Anaphylactic shock [Unknown]
  - Convulsion [Unknown]
